FAERS Safety Report 20200548 (Version 1)
Quarter: 2021Q4

REPORT INFORMATION
  Report Type: Other
  Country: US (occurrence: None)
  Receive Date: 20211217
  Receipt Date: 20211217
  Transmission Date: 20220304
  Serious: No
  Sender: FDA-Public Use
  Company Number: US-ROCHE-2973498

PATIENT
  Sex: Male

DRUGS (2)
  1. OCREVUS [Suspect]
     Active Substance: OCRELIZUMAB
     Indication: Relapsing multiple sclerosis
     Dosage: LAST DATE OF TREATMENT: 15/DEC/2021, ANTICIPATED DATE OF TREATMENT: 15/JUN/2021
     Route: 065
  2. LISINOPRIL [Concomitant]
     Active Substance: LISINOPRIL

REACTIONS (4)
  - COVID-19 [Recovered/Resolved]
  - JC polyomavirus test positive [Unknown]
  - Blood immunoglobulin M decreased [Unknown]
  - B-lymphocyte count decreased [Unknown]
